FAERS Safety Report 7240239-3 (Version None)
Quarter: 2011Q1

REPORT INFORMATION
  Report Type: 
  Country: None (occurrence: None)
  Receive Date: 20110124
  Receipt Date: 20110117
  Transmission Date: 20110831
  Serious: Yes (Other)
  Sender: FDA-Public Use
  Company Number: US-PFIZER INC-2010066390

PATIENT
  Sex: Female
  Weight: 90.703 kg

DRUGS (5)
  1. SIMVASTATIN [Concomitant]
     Indication: BLOOD CHOLESTEROL INCREASED
     Dosage: 20 MG, 1X/DAY
  2. LYRICA [Suspect]
     Indication: PAIN
     Dosage: 75 MG, 1X/DAY
     Route: 048
     Dates: start: 20080601, end: 20091201
  3. HYDROCHLOROTHIAZIDE [Concomitant]
     Indication: HYPERTENSION
     Dosage: 25 MG, UNK
  4. LYRICA [Suspect]
     Indication: FIBROMYALGIA
  5. AMITRIPTYLINE [Concomitant]
     Dosage: UNK

REACTIONS (5)
  - LOSS OF CONSCIOUSNESS [None]
  - SCREAMING [None]
  - ROAD TRAFFIC ACCIDENT [None]
  - BLOOD CHOLESTEROL ABNORMAL [None]
  - CONVULSION [None]
